FAERS Safety Report 23115879 (Version 1)
Quarter: 2023Q4

REPORT INFORMATION
  Report Type: Spontaneous
  Country: US (occurrence: None)
  Receive Date: 20231027
  Receipt Date: 20231027
  Transmission Date: 20240110
  Serious: Yes (Other)
  Sender: FDA-Public Use
  Company Number: US-ENDO-CASE-0035276

PATIENT
  Sex: Male

DRUGS (4)
  1. ACETAMINOPHEN\HYDROCODONE BITARTRATE [Suspect]
     Active Substance: ACETAMINOPHEN\HYDROCODONE BITARTRATE
  2. TRAMADOL HYDROCHLORIDE [Suspect]
     Active Substance: TRAMADOL HYDROCHLORIDE
  3. ACETAMINOPHEN\OXYCODONE HYDROCHLORIDE [Suspect]
     Active Substance: ACETAMINOPHEN\OXYCODONE HYDROCHLORIDE
  4. OXYMORPHONE HYDROCHLORIDE [Suspect]
     Active Substance: OXYMORPHONE HYDROCHLORIDE

REACTIONS (12)
  - Gastrointestinal disorder [Unknown]
  - Gait disturbance [Unknown]
  - Depression [Unknown]
  - Foetal exposure during pregnancy [Unknown]
  - Dependence [Unknown]
  - Cardiac disorder [Unknown]
  - Asthma [Unknown]
  - Autism spectrum disorder [Unknown]
  - Speech disorder developmental [Unknown]
  - Developmental delay [Unknown]
  - Learning disorder [Unknown]
  - Drug withdrawal syndrome neonatal [Unknown]
